FAERS Safety Report 10485282 (Version 1)
Quarter: 2014Q3

REPORT INFORMATION
  Report Type: Spontaneous
  Country: US (occurrence: US)
  Receive Date: 20140930
  Receipt Date: 20140930
  Transmission Date: 20150326
  Serious: Yes (Hospitalization, Other)
  Sender: FDA-Public Use
  Company Number: PHHY2014US125547

PATIENT
  Age: 43 Year
  Sex: Female

DRUGS (8)
  1. SIROLIMUS. [Suspect]
     Active Substance: SIROLIMUS
  2. OCTREOTIDE [Suspect]
     Active Substance: OCTREOTIDE
     Indication: PANCREATIC NEUROENDOCRINE TUMOUR METASTATIC
     Dosage: UNK
  3. TACROLIMUS. [Suspect]
     Active Substance: TACROLIMUS
     Dosage: 30 MG
  4. CALCITONIN [Suspect]
     Active Substance: CALCITONIN
  5. DENOSUMAB [Suspect]
     Active Substance: DENOSUMAB
  6. TACROLIMUS. [Suspect]
     Active Substance: TACROLIMUS
     Dosage: 20 MG
     Dates: start: 200806
  7. SUNITINIB [Suspect]
     Active Substance: SUNITINIB
  8. DOXORUBICIN [Suspect]
     Active Substance: DOXORUBICIN
     Dosage: 75 MG
     Dates: start: 201103

REACTIONS (15)
  - Hypercalcaemia [Recovering/Resolving]
  - Dyspnoea [Unknown]
  - Cholangitis [Recovering/Resolving]
  - Escherichia bacteraemia [Recovering/Resolving]
  - Abdominal pain [Recovering/Resolving]
  - Tumour necrosis [Recovering/Resolving]
  - Decreased appetite [Unknown]
  - Pyrexia [Recovering/Resolving]
  - Fatigue [Unknown]
  - Nausea [Unknown]
  - Metastases to liver [Recovering/Resolving]
  - Diarrhoea [Unknown]
  - Therapeutic response decreased [Unknown]
  - Bile duct stone [Recovering/Resolving]
  - Malignant neoplasm progression [Unknown]
